FAERS Safety Report 5945828-1 (Version None)
Quarter: 2008Q4

REPORT INFORMATION
  Report Type: 
  Country: None (occurrence: None)
  Receive Date: 20081108
  Receipt Date: 20081027
  Transmission Date: 20090506
  Serious: Yes (Death)
  Sender: FDA-Public Use
  Company Number: GB-BAUSCH-2008BL004380

PATIENT
  Sex: Male

DRUGS (11)
  1. PREDNISOLONE [Suspect]
     Indication: DRUG USE FOR UNKNOWN INDICATION
     Dates: start: 20060201, end: 20060421
  2. BEVACIZUMAB [Suspect]
     Indication: DRUG USE FOR UNKNOWN INDICATION
     Dates: start: 20050331
  3. CYCLOPHOSPHAMIDE [Suspect]
     Indication: DRUG USE FOR UNKNOWN INDICATION
     Dates: start: 20060201, end: 20060421
  4. RITUXIMAB [Suspect]
     Indication: DRUG USE FOR UNKNOWN INDICATION
     Dates: start: 20050531
  5. VINCRISTINE [Suspect]
     Indication: DRUG USE FOR UNKNOWN INDICATION
     Dates: start: 20060201, end: 20060421
  6. ZEVALIN /USA/ [Suspect]
     Indication: DRUG USE FOR UNKNOWN INDICATION
     Dates: start: 20050407
  7. CARMUSTINE [Suspect]
     Indication: DRUG USE FOR UNKNOWN INDICATION
  8. CYTARABINE [Suspect]
     Indication: DRUG USE FOR UNKNOWN INDICATION
  9. ETOPOSIDE [Suspect]
     Indication: DRUG USE FOR UNKNOWN INDICATION
  10. METHOTREXATE [Suspect]
     Indication: DRUG USE FOR UNKNOWN INDICATION
  11. CHLORAMBUCIL [Concomitant]
     Indication: NON-HODGKIN'S LYMPHOMA UNSPECIFIED HISTOLOGY INDOLENT STAGE III
     Dates: start: 20010901

REACTIONS (1)
  - ACUTE MYELOID LEUKAEMIA [None]
